FAERS Safety Report 5744897-1 (Version None)
Quarter: 2008Q2

REPORT INFORMATION
  Report Type: 
  Country: None (occurrence: None)
  Receive Date: 20080516
  Receipt Date: 20080501
  Transmission Date: 20081010
  Serious: Yes (Life-Threatening, Hospitalization)
  Sender: FDA-Public Use
  Company Number: 2008S1007664

PATIENT
  Age: 50 Year
  Sex: Female

DRUGS (3)
  1. FLUOXETINE [Suspect]
     Indication: DEPRESSION
     Dosage: 20 MG
  2. OESTROGEN (DIETHYLSTILBESTROL) [Suspect]
     Dosage: TRANSDERMAL
     Route: 062
  3. ZOLMITRIPTAN [Concomitant]

REACTIONS (12)
  - ANAEMIA [None]
  - ARTHRALGIA [None]
  - CONTUSION [None]
  - JOINT SWELLING [None]
  - LIP SWELLING [None]
  - NAIL DISORDER [None]
  - PERIPHERAL COLDNESS [None]
  - PLATELET COUNT DECREASED [None]
  - SYNOVITIS [None]
  - SYSTEMIC LUPUS ERYTHEMATOSUS [None]
  - THROMBOCYTOPENIA [None]
  - URTICARIA [None]
